FAERS Safety Report 12920281 (Version 1)
Quarter: 2016Q4

REPORT INFORMATION
  Report Type: Spontaneous
  Country: US (occurrence: US)
  Receive Date: 20161105
  Receipt Date: 20161105
  Transmission Date: 20170207
  Serious: No
  Sender: FDA-Public Use
  Company Number: None

PATIENT
  Age: 35 Year
  Sex: Female
  Weight: 65.25 kg

DRUGS (1)
  1. PRISTIQ EXTENDED-RELEASE [Suspect]
     Active Substance: DESVENLAFAXINE SUCCINATE
     Indication: PANIC DISORDER
     Dosage: ?          QUANTITY:1 TABLET(S);?
     Route: 048

REACTIONS (14)
  - Nightmare [None]
  - Bruxism [None]
  - Blood glucose decreased [None]
  - Constipation [None]
  - Insomnia [None]
  - Decreased appetite [None]
  - Pain in jaw [None]
  - Night sweats [None]
  - Anxiety [None]
  - Dry mouth [None]
  - Weight decreased [None]
  - Nausea [None]
  - Fatigue [None]
  - Poor quality sleep [None]

NARRATIVE: CASE EVENT DATE: 20161014
